FAERS Safety Report 17692469 (Version 1)
Quarter: 2020Q2

REPORT INFORMATION
  Report Type: Spontaneous
  Country: GB (occurrence: GB)
  Receive Date: 20200422
  Receipt Date: 20200422
  Transmission Date: 20200714
  Serious: Yes (Other)
  Sender: FDA-Public Use
  Company Number: GB-MYLANLABS-2020M1038969

PATIENT
  Age: 28 Year
  Sex: Female
  Weight: 99 kg

DRUGS (9)
  1. FOLIC ACID. [Concomitant]
     Active Substance: FOLIC ACID
     Dosage: 1 DOSAGE FORM, QD
     Dates: start: 20191031
  2. ALGINIC ACID [Concomitant]
     Active Substance: ALGINIC ACID
     Dosage: 15 MILLILITER, PRN
     Dates: start: 20200131, end: 20200228
  3. PARACETAMOL [Concomitant]
     Active Substance: ACETAMINOPHEN
     Dosage: 1-2
     Dates: start: 20200225, end: 20200225
  4. AMITRIPTYLINE HYDROCHLORIDE. [Concomitant]
     Active Substance: AMITRIPTYLINE HYDROCHLORIDE
     Dosage: AT NIGHT
     Dates: start: 20191227
  5. QUETIAPINE. [Concomitant]
     Active Substance: QUETIAPINE
     Dosage: VARIABLE DOSE
     Dates: start: 20200221
  6. FLIXONASE [Concomitant]
     Active Substance: FLUTICASONE PROPIONATE
     Dosage: SPRAYS, EACH NOSTRIL
     Dates: start: 20191011
  7. TRANEXAMIC ACID. [Concomitant]
     Active Substance: TRANEXAMIC ACID
     Dosage: FOR 3 DAYS
     Dates: start: 20200103, end: 20200110
  8. FLUOXETINE [Concomitant]
     Active Substance: FLUOXETINE HYDROCHLORIDE
     Dosage: FOR 1 WEEK THEN STOP
     Dates: start: 20191129, end: 20200221
  9. CITALOPRAM [Suspect]
     Active Substance: CITALOPRAM HYDROBROMIDE
     Indication: PRODUCT USED FOR UNKNOWN INDICATION
     Dosage: 10 MILLIGRAM
     Dates: start: 20200316

REACTIONS (1)
  - Hypersensitivity [Not Recovered/Not Resolved]

NARRATIVE: CASE EVENT DATE: 20200316
